FAERS Safety Report 11875232 (Version 1)
Quarter: 2015Q4

REPORT INFORMATION
  Report Type: Spontaneous
  Country: US (occurrence: None)
  Receive Date: 20151228
  Receipt Date: 20151228
  Transmission Date: 20160305
  Serious: Yes (Other)
  Sender: FDA-Public Use
  Company Number: None

PATIENT
  Age: 19 Year
  Sex: Female
  Weight: 79.38 kg

DRUGS (3)
  1. CREAM FOR ECZEMA [Concomitant]
  2. RIFAMPIN 300MG GENERIC [Suspect]
     Active Substance: RIFAMPIN
     Indication: TUBERCULOSIS
     Route: 048
     Dates: start: 20151020, end: 20151218
  3. ENBREL [Concomitant]
     Active Substance: ETANERCEPT

REACTIONS (4)
  - Tear discolouration [None]
  - Hepatic function abnormal [None]
  - Tooth discolouration [None]
  - Chromaturia [None]

NARRATIVE: CASE EVENT DATE: 20151218
